FAERS Safety Report 4290251-1 (Version None)
Quarter: 2004Q1

REPORT INFORMATION
  Report Type: 
  Country: None (occurrence: None)
  Receive Date: 20040126
  Receipt Date: 20031030
  Transmission Date: 20041129
  Serious: No
  Sender: FDA-Public Use
  Company Number: USA030434584

PATIENT
  Age: 55 Year
  Sex: Male
  Weight: 57 kg

DRUGS (5)
  1. FORTEO [Suspect]
     Indication: OSTEOPOROSIS
     Dosage: 20 UG DAY
     Dates: start: 20030401
  2. FOSAMAX [Concomitant]
  3. PREDNISONE [Concomitant]
  4. CALCIUM [Concomitant]
  5. MAGNESIUM [Concomitant]

REACTIONS (17)
  - ASTHENIA [None]
  - BLOOD CHOLESTEROL ABNORMAL [None]
  - DIZZINESS [None]
  - FATIGUE [None]
  - FEELING ABNORMAL [None]
  - FEELING HOT [None]
  - HOT FLUSH [None]
  - INITIAL INSOMNIA [None]
  - INJECTION SITE BURNING [None]
  - INJECTION SITE ERYTHEMA [None]
  - INJECTION SITE HAEMORRHAGE [None]
  - INJECTION SITE INDURATION [None]
  - INJECTION SITE PAIN [None]
  - INJECTION SITE URTICARIA [None]
  - LOW DENSITY LIPOPROTEIN INCREASED [None]
  - SOMNOLENCE [None]
  - WEIGHT DECREASED [None]
